FAERS Safety Report 12463389 (Version 2)
Quarter: 2016Q2

REPORT INFORMATION
  Report Type: Report from Study
  Country: US (occurrence: US)
  Receive Date: 20160614
  Receipt Date: 20160623
  Transmission Date: 20160815
  Serious: Yes (Hospitalization, Disabling)
  Sender: FDA-Public Use
  Company Number: US-ROCHE-1772490

PATIENT
  Age: 55 Year
  Sex: Male

DRUGS (9)
  1. ACETAMINOPHEN. [Concomitant]
     Active Substance: ACETAMINOPHEN
  2. MARIZOMIB [Suspect]
     Active Substance: MARIZOMIB
     Indication: MALIGNANT GLIOMA
     Dosage: 3X4 WEEKS
     Route: 042
     Dates: start: 20160129, end: 20160505
  3. ONDANSETRON [Concomitant]
     Active Substance: ONDANSETRON
     Route: 065
     Dates: start: 20150706
  4. KEPPRA [Concomitant]
     Active Substance: LEVETIRACETAM
     Route: 065
     Dates: start: 201505
  5. HYDROCORTISONE. [Concomitant]
     Active Substance: HYDROCORTISONE
     Route: 065
     Dates: start: 20160113
  6. MECLIZINE [Concomitant]
     Active Substance: MECLIZINE HYDROCHLORIDE
     Route: 065
     Dates: start: 201604
  7. BEVACIZUMAB [Suspect]
     Active Substance: BEVACIZUMAB
     Indication: GLIOBLASTOMA
     Dosage: DATE OF LAST DOSE PRIOR TO SAE: 19/MAY/2016
     Route: 042
     Dates: start: 20160129
  8. TYLENOL [Concomitant]
     Active Substance: ACETAMINOPHEN
  9. EMEND [Concomitant]
     Active Substance: APREPITANT
     Route: 065
     Dates: start: 20160225

REACTIONS (1)
  - Optic nerve disorder [Recovering/Resolving]

NARRATIVE: CASE EVENT DATE: 20160527
